FAERS Safety Report 7563083-6 (Version None)
Quarter: 2011Q2

REPORT INFORMATION
  Report Type: 
  Country: None (occurrence: None)
  Receive Date: 20110622
  Receipt Date: 20110613
  Transmission Date: 20111010
  Serious: Yes (Hospitalization)
  Sender: FDA-Public Use
  Company Number: US-ASTRAZENECA-2011SE11863

PATIENT
  Age: 82 Year
  Sex: Female

DRUGS (1)
  1. CRESTOR [Suspect]
     Route: 048
     Dates: start: 20090401

REACTIONS (3)
  - AORTIC VALVE INCOMPETENCE [None]
  - AORTIC ANEURYSM REPAIR [None]
  - AORTIC VALVE REPLACEMENT [None]
